FAERS Safety Report 8580903-7 (Version None)
Quarter: 2012Q3

REPORT INFORMATION
  Report Type: 
  Country: None (occurrence: None)
  Receive Date: 20120727
  Receipt Date: 20120712
  Transmission Date: 20120928
  Serious: Yes (Other)
  Sender: FDA-Public Use
  Company Number: 2012AM006599

PATIENT
  Age: 57 Year
  Sex: Male

DRUGS (3)
  1. NEURONTIN [Concomitant]
  2. NOVOLOG [Concomitant]
  3. SYMLIN [Suspect]
     Indication: TYPE 2 DIABETES MELLITUS
     Dosage: 120 MCG;TID;SC
     Route: 058
     Dates: start: 20100101

REACTIONS (3)
  - GLYCOSYLATED HAEMOGLOBIN INCREASED [None]
  - DRUG EFFECT DECREASED [None]
  - BACK PAIN [None]
